FAERS Safety Report 25918984 (Version 1)
Quarter: 2025Q4

REPORT INFORMATION
  Report Type: Spontaneous
  Country: US (occurrence: US)
  Receive Date: 20251014
  Receipt Date: 20251014
  Transmission Date: 20260117
  Serious: Yes (Hospitalization, Other)
  Sender: RADIUS PHARM
  Company Number: US-RADIUS HEALTH INC.-US-RADIUS-25054548

PATIENT
  Age: 80 Year
  Sex: Female

DRUGS (1)
  1. TYMLOS [Suspect]
     Active Substance: ABALOPARATIDE
     Indication: Product used for unknown indication
     Dosage: 80 MICROGRAM, QD
     Route: 058

REACTIONS (11)
  - Spinal operation [Unknown]
  - Hip fracture [Recovered/Resolved]
  - Medical device change [Unknown]
  - Fall [Recovered/Resolved]
  - Seasonal allergy [Unknown]
  - Sneezing [Unknown]
  - Rhinorrhoea [Unknown]
  - Mental disorder [Unknown]
  - Urinary incontinence [Unknown]
  - Bladder discomfort [Unknown]
  - Injection site pain [Recovered/Resolved]

NARRATIVE: CASE EVENT DATE: 20250501
